FAERS Safety Report 9632908 (Version 1)
Quarter: 2013Q4

REPORT INFORMATION
  Report Type: Spontaneous
  Country: US (occurrence: US)
  Receive Date: 20131018
  Receipt Date: 20131018
  Transmission Date: 20140711
  Serious: Yes (Death, Other)
  Sender: FDA-Public Use
  Company Number: US-BAXTER-2013BAX040336

PATIENT
  Age: 23 Year
  Sex: Female

DRUGS (3)
  1. OSMITROL INJECTION (MANNITOL INJECTION, USP) [Suspect]
     Indication: BRAIN OEDEMA
     Route: 042
  2. OSMITROL INJECTION (MANNITOL INJECTION, USP) [Suspect]
     Route: 042
  3. DEXAMETHASONE [Concomitant]
     Indication: CAROTID ARTERY OCCLUSION
     Route: 042

REACTIONS (3)
  - Toxicity to various agents [Recovered/Resolved]
  - Renal failure [Recovered/Resolved]
  - Death [Fatal]
